FAERS Safety Report 19357857 (Version 3)
Quarter: 2021Q2

REPORT INFORMATION
  Report Type: Spontaneous
  Country: DE (occurrence: DE)
  Receive Date: 20210531
  Receipt Date: 20210625
  Transmission Date: 20210717
  Serious: Yes (Death, Hospitalization, Other)
  Sender: FDA-Public Use
  Company Number: NVSC2021DE120097

PATIENT
  Age: 7 Year
  Sex: Female
  Weight: 19.8 kg

DRUGS (4)
  1. PREDNISOLONE. [Concomitant]
     Active Substance: PREDNISOLONE
     Indication: STILL^S DISEASE
     Dosage: 10 MG, QD
     Route: 065
     Dates: start: 20201207
  2. AMOXICILLIN/CLAVULANIC ACID [Concomitant]
     Active Substance: AMOXICILLIN\CLAVULANIC ACID
     Indication: PRODUCT USED FOR UNKNOWN INDICATION
     Dosage: 750 MG, QD
     Route: 048
     Dates: start: 202103
  3. CANAKINUMAB. [Suspect]
     Active Substance: CANAKINUMAB
     Indication: STILL^S DISEASE
     Dosage: 80 MG, Q4W
     Route: 065
     Dates: start: 20210324
  4. COTRIM [Concomitant]
     Active Substance: SULFAMETHOXAZOLE\TRIMETHOPRIM
     Indication: ANTIFUNGAL PROPHYLAXIS
     Dosage: 480 MG, QW (3 DAYS PER WEEK)
     Route: 065

REACTIONS (22)
  - General physical condition abnormal [Fatal]
  - Pyrexia [Recovered/Resolved]
  - Bronchospasm [Unknown]
  - Haemophagocytic lymphohistiocytosis [Fatal]
  - Circulatory collapse [Fatal]
  - Cardiac arrest [Fatal]
  - Somnolence [Unknown]
  - Blood lactate dehydrogenase increased [Fatal]
  - Pyrexia [Fatal]
  - Hypocalcaemia [Unknown]
  - Haemorrhage [Unknown]
  - Pleural effusion [Fatal]
  - Hyponatraemia [Unknown]
  - Haemoglobin decreased [Unknown]
  - General physical health deterioration [Fatal]
  - Necrosis [Unknown]
  - Sinus tachycardia [Unknown]
  - Blood uric acid increased [Unknown]
  - Aspartate aminotransferase abnormal [Fatal]
  - Serum ferritin increased [Fatal]
  - Renal failure [Fatal]
  - Otitis media [Recovered/Resolved]

NARRATIVE: CASE EVENT DATE: 20210317
